FAERS Safety Report 5967902-6 (Version None)
Quarter: 2008Q4

REPORT INFORMATION
  Report Type: 
  Country: None (occurrence: None)
  Receive Date: 20081126
  Receipt Date: 20081031
  Transmission Date: 20090506
  Serious: Yes (Hospitalization)
  Sender: FDA-Public Use
  Company Number: JP-BIOGENIDEC-2008BI012827

PATIENT
  Age: 52 Year
  Sex: Female

DRUGS (5)
  1. AVONEX [Suspect]
     Indication: RELAPSING-REMITTING MULTIPLE SCLEROSIS
     Route: 030
     Dates: start: 20080410, end: 20080417
  2. BRUFEN [Concomitant]
     Indication: DRUG USE FOR UNKNOWN INDICATION
     Dates: start: 20080410, end: 20080417
  3. MUCOSTA [Concomitant]
     Dates: start: 20080410, end: 20080417
  4. MAGLAX [Concomitant]
     Dates: start: 20080318, end: 20080419
  5. PURSENNID [Concomitant]
     Dates: start: 20080317

REACTIONS (2)
  - HEPATITIS [None]
  - VERTIGO [None]
